FAERS Safety Report 4843166-1 (Version None)
Quarter: 2005Q4

REPORT INFORMATION
  Report Type: 
  Country: None (occurrence: None)
  Receive Date: 20051201
  Receipt Date: 20051121
  Transmission Date: 20060501
  Serious: Yes (Other)
  Sender: FDA-Public Use
  Company Number: GB-ABBOTT-05P-167-0317876-00

PATIENT
  Age: 59 Year
  Sex: Female
  Weight: 80 kg

DRUGS (6)
  1. REDUCTIL [Suspect]
     Indication: OBESITY
     Route: 048
     Dates: start: 20051005, end: 20051012
  2. REDUCTIL [Suspect]
     Dates: start: 20050101, end: 20050101
  3. KLIOGEST ^NOVO INDUSTRI^ [Concomitant]
     Indication: HORMONE REPLACEMENT THERAPY
     Route: 062
  4. ARTHROTEC [Concomitant]
     Indication: ARTHRITIS
     Route: 048
  5. SALBUTAMOL [Concomitant]
     Indication: ASTHMA
     Route: 055
  6. BECLOMETHIASONE [Concomitant]
     Indication: ASTHMA
     Route: 055

REACTIONS (1)
  - ASTHMA [None]
